FAERS Safety Report 6883685-X (Version None)
Quarter: 2010Q3

REPORT INFORMATION
  Report Type: 
  Country: None (occurrence: None)
  Receive Date: 20100729
  Receipt Date: 20100716
  Transmission Date: 20110219
  Serious: Yes (Hospitalization)
  Sender: FDA-Public Use
  Company Number: A0867492A

PATIENT
  Age: 65 Year
  Sex: Male
  Weight: 156.8 kg

DRUGS (11)
  1. AVANDIA [Suspect]
     Indication: DIABETES MELLITUS
     Dosage: 4MG PER DAY
     Route: 048
     Dates: start: 19990101, end: 20080101
  2. ALLEGRA [Concomitant]
  3. CLONAZEPAM [Concomitant]
  4. FLOMAX [Concomitant]
  5. INSULIN [Concomitant]
  6. LISINOPRIL AND HYDROCHLOROTHIAZIDE [Concomitant]
  7. METFORMIN HCL [Concomitant]
  8. METOPROLOL TARTRATE [Concomitant]
  9. REQUIP [Concomitant]
  10. VISTARIL [Concomitant]
  11. ZOCOR [Concomitant]

REACTIONS (2)
  - CARDIAC FAILURE CONGESTIVE [None]
  - CARDIAC VALVE DISEASE [None]
